FAERS Safety Report 12281015 (Version 1)
Quarter: 2016Q2

REPORT INFORMATION
  Report Type: Spontaneous
  Country: IT (occurrence: IT)
  Receive Date: 20160419
  Receipt Date: 20160419
  Transmission Date: 20160815
  Serious: Yes (Other)
  Sender: FDA-Public Use
  Company Number: IT-EISAI MEDICAL RESEARCH-EC-2016-016112

PATIENT
  Age: 51 Year
  Sex: Female

DRUGS (4)
  1. EN [Suspect]
     Active Substance: DELORAZEPAM
     Indication: SELF INJURIOUS BEHAVIOUR
     Route: 048
     Dates: start: 20160412, end: 20160412
  2. PARIET [Suspect]
     Active Substance: RABEPRAZOLE SODIUM
     Indication: SELF INJURIOUS BEHAVIOUR
     Route: 048
     Dates: start: 20160412, end: 20160412
  3. CITALOPRAM [Suspect]
     Active Substance: CITALOPRAM HYDROBROMIDE
     Indication: SELF INJURIOUS BEHAVIOUR
     Dosage: UNKNOWN
     Route: 048
     Dates: start: 20160412, end: 20160412
  4. FLUNOX [Suspect]
     Active Substance: FLURAZEPAM HYDROCHLORIDE
     Indication: SELF INJURIOUS BEHAVIOUR
     Route: 048
     Dates: start: 20160412, end: 20160412

REACTIONS (1)
  - Intentional overdose [Recovered/Resolved]

NARRATIVE: CASE EVENT DATE: 20160412
